FAERS Safety Report 23046688 (Version 3)
Quarter: 2024Q2

REPORT INFORMATION
  Report Type: Spontaneous
  Country: US (occurrence: US)
  Receive Date: 20231009
  Receipt Date: 20240620
  Transmission Date: 20240716
  Serious: Yes (Death, Other)
  Sender: FDA-Public Use
  Company Number: US-AMGEN-USASP2023177778

PATIENT

DRUGS (4)
  1. BEVACIZUMAB [Suspect]
     Active Substance: BEVACIZUMAB
     Indication: Squamous cell carcinoma of the vulva
     Dosage: 15 MILLIGRAM/SQ. METER, Q3WK
     Route: 065
  2. CARBOPLATIN [Concomitant]
     Active Substance: CARBOPLATIN
     Indication: Squamous cell carcinoma of the vulva
     Dosage: UNK [AREA UNDER THE CURVE (AUC 5 TO 6)]
  3. CISPLATIN [Concomitant]
     Active Substance: CISPLATIN
     Indication: Squamous cell carcinoma of the vulva
     Dosage: 50 MILLIGRAM/SQ. METER
     Route: 065
  4. PACLITAXEL [Concomitant]
     Active Substance: PACLITAXEL
     Indication: Squamous cell carcinoma of the vulva
     Dosage: 175 MILLIGRAM/SQ. METER

REACTIONS (5)
  - Death [Fatal]
  - Squamous cell carcinoma of the vulva [Unknown]
  - Sepsis [Fatal]
  - Seroma [Recovered/Resolved]
  - Off label use [Unknown]
